FAERS Safety Report 11696708 (Version 1)
Quarter: 2015Q4

REPORT INFORMATION
  Report Type: Spontaneous
  Country: FR (occurrence: FR)
  Receive Date: 20151104
  Receipt Date: 20151104
  Transmission Date: 20160304
  Serious: Yes (Hospitalization)
  Sender: FDA-Public Use
  Company Number: FR-JNJFOC-20151020443

PATIENT
  Age: 65 Year
  Sex: Female

DRUGS (7)
  1. CARBOPLATINE MYLAN [Suspect]
     Active Substance: CARBOPLATIN
     Indication: PRODUCT USED FOR UNKNOWN INDICATION
     Route: 042
     Dates: start: 20150625, end: 20150625
  2. LEVOTHYROX [Concomitant]
     Active Substance: LEVOTHYROXINE
     Dosage: EVERY DAYS EXCEPT SUNDAY
     Route: 065
  3. AMOXICILLIN AND CLAVULANATE POTASSIUM [Suspect]
     Active Substance: AMOXICILLIN\CLAVULANATE POTASSIUM
     Indication: OROPHARYNGEAL PAIN
     Route: 048
     Dates: start: 20150620, end: 20150622
  4. XANAX [Concomitant]
     Active Substance: ALPRAZOLAM
     Dosage: 0.5-0.5-1
     Route: 065
  5. IMOVANE [Concomitant]
     Active Substance: ZOPICLONE
     Route: 065
  6. EFFEXOR [Concomitant]
     Active Substance: VENLAFAXINE HYDROCHLORIDE
     Route: 065
  7. CAELYX [Suspect]
     Active Substance: DOXORUBICIN HYDROCHLORIDE
     Indication: PRODUCT USED FOR UNKNOWN INDICATION
     Route: 042
     Dates: start: 20150625, end: 20150625

REACTIONS (1)
  - Proctitis [Recovering/Resolving]

NARRATIVE: CASE EVENT DATE: 20150703
